FAERS Safety Report 14193080 (Version 1)
Quarter: 2017Q4

REPORT INFORMATION
  Report Type: Spontaneous
  Country: IN (occurrence: IN)
  Receive Date: 20171116
  Receipt Date: 20171116
  Transmission Date: 20180321
  Serious: No
  Sender: FDA-Public Use
  Company Number: IN-LUPIN PHARMACEUTICALS INC.-E2B_00006777

PATIENT
  Age: 27 Year
  Sex: Female

DRUGS (1)
  1. YAMINI [Suspect]
     Active Substance: DROSPIRENONE\ETHINYL ESTRADIOL
     Indication: CONTRACEPTION
     Dosage: 1 DF,QD,
     Route: 048
     Dates: start: 201610

REACTIONS (1)
  - Withdrawal bleed [Recovered/Resolved]

NARRATIVE: CASE EVENT DATE: 201610
